FAERS Safety Report 15470482 (Version 2)
Quarter: 2018Q4

REPORT INFORMATION
  Report Type: Spontaneous
  Country: US (occurrence: US)
  Receive Date: 20181005
  Receipt Date: 20181017
  Transmission Date: 20190205
  Serious: No
  Sender: FDA-Public Use
  Company Number: US-TEVA-2018-US-959878

PATIENT
  Age: 36 Year
  Sex: Female
  Weight: 90.8 kg

DRUGS (5)
  1. TRAZODONE [Suspect]
     Active Substance: TRAZODONE HYDROCHLORIDE
     Indication: DEPRESSION
  2. TRAZODONE [Suspect]
     Active Substance: TRAZODONE HYDROCHLORIDE
     Indication: SCHIZOPHRENIA
     Dosage: 100 MILLIGRAM DAILY;
     Route: 048
     Dates: start: 20180710
  3. FLUPHENAZINE [Concomitant]
     Active Substance: FLUPHENAZINE
     Route: 048
  4. MELATONIN [Concomitant]
     Active Substance: MELATONIN
  5. FLUPHENAZINE [Concomitant]
     Active Substance: FLUPHENAZINE

REACTIONS (8)
  - Vision blurred [Recovering/Resolving]
  - Heart rate decreased [Not Recovered/Not Resolved]
  - Hypotension [Not Recovered/Not Resolved]
  - Eating disorder [Recovering/Resolving]
  - Paranoia [Unknown]
  - Dyspnoea [Recovering/Resolving]
  - Hypomania [Unknown]
  - Insomnia [Recovered/Resolved]

NARRATIVE: CASE EVENT DATE: 20180710
